FAERS Safety Report 6067923-1 (Version None)
Quarter: 2009Q1

REPORT INFORMATION
  Report Type: 
  Country: None (occurrence: None)
  Receive Date: 20090206
  Receipt Date: 20090127
  Transmission Date: 20090719
  Serious: Yes (Other)
  Sender: FDA-Public Use
  Company Number: NO-BAXTER-2009BH001078

PATIENT
  Age: 33 Year
  Sex: Male

DRUGS (14)
  1. HOLOXAN BAXTER [Suspect]
     Indication: EWING'S SARCOMA
     Route: 065
     Dates: start: 20081126, end: 20081128
  2. HOLOXAN BAXTER [Suspect]
     Route: 065
     Dates: start: 20081215, end: 20081217
  3. HOLOXAN BAXTER [Suspect]
     Route: 065
     Dates: start: 20081126, end: 20081128
  4. BLEOMYCIN GENERIC [Suspect]
     Indication: EWING'S SARCOMA
     Route: 065
  5. CISPLATIN [Suspect]
     Indication: EWING'S SARCOMA
     Route: 065
  6. VINCRISTINE [Suspect]
     Indication: EWING'S SARCOMA
     Route: 065
     Dates: start: 20081215, end: 20081215
  7. MESNA [Suspect]
     Indication: EWING'S SARCOMA
     Route: 065
     Dates: start: 20081215, end: 20081216
  8. DOXORUBICIN HCL [Suspect]
     Indication: EWING'S SARCOMA
     Route: 065
     Dates: start: 20081215, end: 20081217
  9. ETOPOSIDE [Suspect]
     Indication: EWING'S SARCOMA
     Route: 065
     Dates: start: 20081215, end: 20081216
  10. ZOPICLONE [Concomitant]
     Dates: start: 20081218, end: 20081218
  11. ZOFRAN [Concomitant]
     Dates: start: 20081218, end: 20081218
  12. DUPHALAC /NET/ [Concomitant]
     Dates: start: 20081218, end: 20081218
  13. ACETAMINOPHEN [Concomitant]
     Dates: start: 20081218, end: 20081218
  14. FRAGMIN [Concomitant]
     Dates: start: 20081218, end: 20081218

REACTIONS (1)
  - ENCEPHALOPATHY [None]
